FAERS Safety Report 5486578-8 (Version None)
Quarter: 2007Q4

REPORT INFORMATION
  Report Type: 
  Country: None (occurrence: None)
  Receive Date: 20071016
  Receipt Date: 20071008
  Transmission Date: 20080405
  Serious: Yes (Other)
  Sender: FDA-Public Use
  Company Number: IT-BRISTOL-MYERS SQUIBB COMPANY-13933734

PATIENT
  Age: 50 Year
  Sex: Female

DRUGS (1)
  1. STREPTOMYCIN [Suspect]
     Indication: LUNG DISORDER
     Route: 030

REACTIONS (3)
  - AREFLEXIA [None]
  - DEAFNESS BILATERAL [None]
  - DIZZINESS [None]
